FAERS Safety Report 8471409-4 (Version None)
Quarter: 2012Q2

REPORT INFORMATION
  Report Type: 
  Country: None (occurrence: None)
  Receive Date: 20120627
  Receipt Date: 20120618
  Transmission Date: 20120825
  Serious: Yes (Hospitalization, Other)
  Sender: FDA-Public Use
  Company Number: US-ASTRAZENECA-2011SE42843

PATIENT
  Age: 29 Year
  Sex: Male

DRUGS (38)
  1. REBIF [Suspect]
     Dosage: 3 DAYS A WEEK (SU/TU/TH) AFTERNOON BETWEEN 4 AND 7 PM
     Route: 058
  2. ZONEGRAN [Concomitant]
  3. XANAX [Concomitant]
  4. XANAX [Concomitant]
     Dosage: OCCASIONALLY EXTRA DOSAGE
  5. XANAX [Concomitant]
  6. DIVALPROEX EXTENDED-RELEASE [Concomitant]
     Dosage: 2 TABLETS PM
  7. BACLOFEN [Concomitant]
  8. OXYCODONE HCL [Concomitant]
     Dosage: RARELY
  9. LOVAZA [Concomitant]
  10. TOPROL-XL [Suspect]
     Route: 048
  11. SEROQUEL XR [Suspect]
     Indication: DEPRESSIVE SYMPTOM
     Route: 048
  12. NEURONTIN [Concomitant]
  13. DEPAKOTE [Concomitant]
  14. DIVALPROEX EXTENDED-RELEASE [Concomitant]
     Indication: HEADACHE
  15. DIVALPROEX EXTENDED-RELEASE [Concomitant]
     Dosage: 2 TABLETS PM
  16. ZONISAMIDE [Concomitant]
  17. ZONISAMIDE [Concomitant]
  18. LEVOTHYROXINE [Concomitant]
  19. OXYBUTYNIN [Concomitant]
  20. HYRODORPHONE [Concomitant]
     Indication: PAIN
     Dosage: 1 TABLET 4 HOURS TIMES A DAY AS NEEDED
  21. SEROQUEL XR [Suspect]
     Dosage: OCCASIONALLY EXTRA
     Route: 048
  22. BACLOFEN [Concomitant]
  23. BUSPAR [Concomitant]
     Indication: ANXIETY
     Dosage: ONE AND A HALF TWICE DAY AND PRN (AS REQUIRED)
  24. PROBIOTICS [Concomitant]
     Dosage: 1 EVERY THIRD DAY
  25. ZOMIG [Suspect]
     Indication: HEADACHE
     Route: 045
  26. BACLOFEN [Concomitant]
  27. OXYBUTYNIN [Concomitant]
  28. VITAMIN D [Concomitant]
     Dosage: 2 X 2000 MG TABLETS, 1 EVERY THIRD DAY
  29. ZOMIG [Suspect]
     Dosage: PRN (AS REQUIRED)
     Route: 045
  30. GABAPENTIN [Suspect]
     Route: 065
  31. SYNTHROID [Concomitant]
  32. DIVALPROEX EXTENDED-RELEASE [Concomitant]
     Indication: MOOD SWINGS
  33. ZOMIG [Suspect]
     Indication: MIGRAINE
     Route: 045
  34. BUSPAR [Concomitant]
  35. ZOMIG [Suspect]
     Dosage: PRN (AS REQUIRED)
     Route: 045
  36. DEPAKOTE [Concomitant]
  37. LOVAZA [Concomitant]
     Dosage: 3 TABLET PM
  38. BENADRYL [Concomitant]

REACTIONS (13)
  - PNEUMONIA [None]
  - BIPOLAR DISORDER [None]
  - MULTIPLE SCLEROSIS [None]
  - PYREXIA [None]
  - DYSPNOEA [None]
  - LUNG DISORDER [None]
  - MIGRAINE [None]
  - HYPOTHYROIDISM [None]
  - PAIN [None]
  - INFLUENZA LIKE ILLNESS [None]
  - OBESITY [None]
  - URINARY INCONTINENCE [None]
  - LYME DISEASE [None]
